FAERS Safety Report 8560490-X (Version None)
Quarter: 2012Q3

REPORT INFORMATION
  Report Type: 
  Country: None (occurrence: None)
  Receive Date: 20120802
  Receipt Date: 20120723
  Transmission Date: 20120928
  Serious: Yes (Hospitalization)
  Sender: FDA-Public Use
  Company Number: JP-AMGEN-JPNCT2012041178

PATIENT
  Age: 84 Year
  Sex: Female
  Weight: 44 kg

DRUGS (13)
  1. DENOSUMAB [Suspect]
     Indication: OSTEOPOROSIS
     Dosage: UNK UNK, Q6MO
     Route: 058
     Dates: start: 20090625, end: 20111215
  2. CEFAZOLIN SODIUM [Concomitant]
     Indication: CONSTIPATION
     Route: 048
  3. FERROUS CITRATE [Concomitant]
     Indication: ANAEMIA
     Route: 048
     Dates: start: 20100916
  4. BLOPRESS [Concomitant]
     Indication: HYPERTENSION
     Route: 048
  5. FALKEN [Concomitant]
     Indication: SPINAL OSTEOARTHRITIS
     Dosage: AS NECESSARY
     Route: 062
  6. CALCICHEW D3 [Concomitant]
     Dosage: UNK
     Route: 048
     Dates: start: 20090528, end: 20120611
  7. MAGMITT [Concomitant]
     Indication: CONSTIPATION
     Dosage: AS NECESSARY
     Route: 048
  8. VERAPAMIL HCL [Concomitant]
     Indication: ARRHYTHMIA
     Route: 048
  9. HYALEIN [Concomitant]
     Indication: DRY EYE
     Dosage: ADEQUATE/AS NECESSARY
     Route: 031
  10. POVIDONE IODINE [Concomitant]
     Indication: NASOPHARYNGITIS
     Dosage: ADEQUATE
     Route: 050
  11. FLUVASTATIN SODIUM [Concomitant]
     Indication: HYPERLIPIDAEMIA
     Route: 048
  12. CHONDRON [Concomitant]
     Indication: OSTEOARTHRITIS
     Dosage: AS NECESSARY
     Route: 030
  13. LOXONIN [Concomitant]
     Indication: SPINAL OSTEOARTHRITIS
     Dosage: ADEQUATE
     Route: 062

REACTIONS (1)
  - PANCREATIC CARCINOMA [None]
